FAERS Safety Report 5037134-7 (Version None)
Quarter: 2006Q2

REPORT INFORMATION
  Report Type: 
  Country: None (occurrence: None)
  Receive Date: 20060628
  Receipt Date: 20060620
  Transmission Date: 20061013
  Serious: Yes (Hospitalization, Other)
  Sender: FDA-Public Use
  Company Number: GB-JNJFOC-20060604292

PATIENT
  Sex: Female
  Weight: 62 kg

DRUGS (6)
  1. REMICADE [Suspect]
     Indication: RHEUMATOID ARTHRITIS
     Route: 042
  2. METHOTREXATE [Concomitant]
  3. PREDNISOLONE [Concomitant]
  4. CALCICHEW [Concomitant]
  5. FOSAMAX [Concomitant]
  6. SOLPADOL [Concomitant]

REACTIONS (2)
  - PATELLA FRACTURE [None]
  - ROAD TRAFFIC ACCIDENT [None]
